FAERS Safety Report 4707026-9 (Version None)
Quarter: 2005Q3

REPORT INFORMATION
  Report Type: 
  Country: None (occurrence: None)
  Receive Date: 20050701
  Receipt Date: 20050701
  Transmission Date: 20060218
  Serious: Yes (Other)
  Sender: FDA-Public Use
  Company Number: None

PATIENT
  Age: 10 Year
  Sex: Female

DRUGS (1)
  1. COPPERTONE SPORT GEL SPF 30 LOTION [Suspect]
     Indication: PROPHYLAXIS AGAINST SOLAR RADIATION
     Dosage: TOPICAL
     Route: 061
     Dates: start: 20050622, end: 20050622

REACTIONS (6)
  - ANAPHYLACTIC REACTION [None]
  - APPLICATION SITE URTICARIA [None]
  - AURICULAR SWELLING [None]
  - MALAISE [None]
  - PRURITUS [None]
  - SWELLING FACE [None]
